FAERS Safety Report 7756988-4 (Version None)
Quarter: 2011Q3

REPORT INFORMATION
  Report Type: 
  Country: None (occurrence: None)
  Receive Date: 20110916
  Receipt Date: 20110916
  Transmission Date: 20111222
  Serious: Yes (Other)
  Sender: FDA-Public Use
  Company Number: None

PATIENT
  Sex: Male
  Weight: 54.431 kg

DRUGS (2)
  1. LORATADINE [Suspect]
     Indication: RHINORRHOEA
     Dosage: 10 MG
     Route: 048
     Dates: start: 20110914, end: 20110914
  2. LORATADINE [Suspect]
     Indication: MULTIPLE ALLERGIES
     Dosage: 10 MG
     Route: 048
     Dates: start: 20110914, end: 20110914

REACTIONS (3)
  - RASH ERYTHEMATOUS [None]
  - SOMNOLENCE [None]
  - DRUG HYPERSENSITIVITY [None]
